FAERS Safety Report 15995239 (Version 1)
Quarter: 2019Q1

REPORT INFORMATION
  Report Type: Spontaneous
  Country: US (occurrence: US)
  Receive Date: 20190222
  Receipt Date: 20190222
  Transmission Date: 20190418
  Serious: No
  Sender: FDA-Public Use
  Company Number: US-HORIZON-PRO-0037-2019

PATIENT
  Age: 4 Year
  Sex: Female

DRUGS (1)
  1. PROCYSBI [Suspect]
     Active Substance: CYSTEAMINE BITARTRATE
     Indication: CYSTINOSIS
     Dosage: 300 MG (4 X 75 MG) EVERY 12 HOURS

REACTIONS (2)
  - Pyrexia [Unknown]
  - Nasopharyngitis [Unknown]
